FAERS Safety Report 8261876-3 (Version None)
Quarter: 2012Q1

REPORT INFORMATION
  Report Type: 
  Country: None (occurrence: None)
  Receive Date: 20120321
  Receipt Date: 20110209
  Transmission Date: 20120608
  Serious: Yes (Other)
  Sender: FDA-Public Use
  Company Number: 2011SP006331

PATIENT
  Age: 47 Year
  Sex: Female

DRUGS (3)
  1. PEG-INTRON [Suspect]
     Indication: HEPATITIS C
     Dosage: 120 MCG; QW; SC, 60 MCG
     Route: 058
     Dates: start: 20100422
  2. ORTHO TRI-CYCLEN [Concomitant]
  3. RIBAVIRIN [Suspect]
     Indication: PRODUCT USED FOR UNKNOWN INDICATION
     Dosage: 1000 MG; QD
     Dates: start: 20110422

REACTIONS (2)
  - INJECTION SITE ULCER [None]
  - INJECTION SITE HAEMATOMA [None]
